FAERS Safety Report 7145163-2 (Version None)
Quarter: 2010Q4

REPORT INFORMATION
  Report Type: 
  Country: None (occurrence: None)
  Receive Date: 20101208
  Receipt Date: 20101130
  Transmission Date: 20110411
  Serious: Yes (Other)
  Sender: FDA-Public Use
  Company Number: PHHY2010US52910

PATIENT
  Sex: Female

DRUGS (7)
  1. EXTAVIA [Suspect]
     Indication: MULTIPLE SCLEROSIS
     Dosage: 0.25 MG, QOD
     Route: 058
     Dates: start: 20100806, end: 20101001
  2. EXTAVIA [Suspect]
     Dosage: UNK
     Route: 058
     Dates: start: 20101015
  3. TYLENOL SINUS [Concomitant]
     Indication: UPPER RESPIRATORY TRACT INFECTION
     Dosage: UNK
  4. TYLENOL-500 [Concomitant]
     Dosage: UNK
  5. NYQUIL [Concomitant]
     Dosage: UNK
  6. ALEVE [Concomitant]
  7. KLONOPIN [Concomitant]

REACTIONS (14)
  - ABDOMINAL DISCOMFORT [None]
  - CHILLS [None]
  - HEPATIC STEATOSIS [None]
  - INFLUENZA LIKE ILLNESS [None]
  - INJECTION SITE DISCOLOURATION [None]
  - INJECTION SITE ERYTHEMA [None]
  - INJECTION SITE PRURITUS [None]
  - LIVER FUNCTION TEST ABNORMAL [None]
  - NASOPHARYNGITIS [None]
  - NAUSEA [None]
  - OLIGOMENORRHOEA [None]
  - PAIN [None]
  - RHINORRHOEA [None]
  - THYROID FUNCTION TEST ABNORMAL [None]
